FAERS Safety Report 17010515 (Version 1)
Quarter: 2019Q4

REPORT INFORMATION
  Report Type: Spontaneous
  Country: GB (occurrence: GB)
  Receive Date: 20191108
  Receipt Date: 20191108
  Transmission Date: 20200122
  Serious: Yes (Hospitalization, Other)
  Sender: FDA-Public Use
  Company Number: GB-BAYER-2019-197618

PATIENT
  Age: 29 Year
  Sex: Female
  Weight: 69.85 kg

DRUGS (1)
  1. YASMIN [Suspect]
     Active Substance: DROSPIRENONE\ETHINYL ESTRADIOL
     Indication: CONTRACEPTION
     Dosage: UNK
     Route: 048

REACTIONS (10)
  - Hypotension [Not Recovered/Not Resolved]
  - Dizziness [Unknown]
  - Pallor [Unknown]
  - Nausea [Unknown]
  - Vomiting [Unknown]
  - Disturbance in attention [Unknown]
  - Condition aggravated [Unknown]
  - Speech disorder [Unknown]
  - Fatigue [Unknown]
  - Visual impairment [Unknown]

NARRATIVE: CASE EVENT DATE: 20180901
